FAERS Safety Report 12628894 (Version 1)
Quarter: 2016Q3

REPORT INFORMATION
  Report Type: Report from Study
  Country: BR (occurrence: BR)
  Receive Date: 20160808
  Receipt Date: 20160808
  Transmission Date: 20161109
  Serious: Yes (Hospitalization)
  Sender: FDA-Public Use
  Company Number: PHHY2013BR106792

PATIENT
  Sex: Male
  Weight: 48 kg

DRUGS (8)
  1. FOLIC ACID. [Concomitant]
     Active Substance: FOLIC ACID
     Indication: SICKLE CELL ANAEMIA
     Dosage: 1 DF, QD
     Route: 048
  2. EXJADE [Suspect]
     Active Substance: DEFERASIROX
     Indication: SICKLE CELL ANAEMIA
     Dosage: 2 DF OF 500 MG AND 1 DF OF 125 MG), UNK
     Route: 048
  3. EXJADE [Suspect]
     Active Substance: DEFERASIROX
     Dosage: 15 MG/KG, QD (1 TABLET OF 250 MG + 1 TABLET OF 500 MG)
     Route: 048
  4. HYDREA [Concomitant]
     Active Substance: HYDROXYUREA
     Indication: SICKLE CELL ANAEMIA
     Dosage: 2 DF, QD
     Route: 065
  5. BENZETACIL [Concomitant]
     Active Substance: PENICILLIN G BENZATHINE
     Indication: PRODUCT USED FOR UNKNOWN INDICATION
     Route: 065
  6. ERYTHROMYCIN. [Concomitant]
     Active Substance: ERYTHROMYCIN
     Indication: PRODUCT USED FOR UNKNOWN INDICATION
     Route: 065
  7. PEN-V [Concomitant]
     Indication: PRODUCT USED FOR UNKNOWN INDICATION
     Route: 048
  8. EXJADE [Suspect]
     Active Substance: DEFERASIROX
     Indication: LIVER DISORDER
     Dosage: 25 MG/KG, QD (2 TABLETS OF 500 MG AND 1 TABLET OF 125 MG) (IN THE MORNING)
     Route: 048
     Dates: start: 2013

REACTIONS (15)
  - Haemoglobin decreased [Unknown]
  - Palpitations [Recovering/Resolving]
  - Muscle spasms [Unknown]
  - Vomiting [Recovering/Resolving]
  - Product use issue [Unknown]
  - Pain [Unknown]
  - Frequent bowel movements [Unknown]
  - Diarrhoea [Recovering/Resolving]
  - Sickle cell anaemia with crisis [Recovering/Resolving]
  - Weight gain poor [Unknown]
  - Abdominal pain [Recovering/Resolving]
  - Nausea [Recovering/Resolving]
  - Abdominal pain upper [Recovering/Resolving]
  - Serum ferritin increased [Unknown]
  - Weight decreased [Unknown]
